FAERS Safety Report 7819396-3 (Version None)
Quarter: 2011Q4

REPORT INFORMATION
  Report Type: 
  Country: None (occurrence: None)
  Receive Date: 20111018
  Receipt Date: 20110329
  Transmission Date: 20120403
  Serious: No
  Sender: FDA-Public Use
  Company Number: US-ASTRAZENECA-2011SE17744

PATIENT
  Age: 68 Year
  Sex: Female
  Weight: 65.8 kg

DRUGS (13)
  1. SOMA [Concomitant]
     Dosage: HS
  2. IBUPROFEN [Concomitant]
     Dosage: DAILY
  3. CRESTOR [Concomitant]
     Dosage: DAILY
  4. ASPIRIN [Concomitant]
  5. ROBAXIN [Concomitant]
     Dosage: QID
  6. TRAZODONE HYDROCHLORIDE [Concomitant]
     Dosage: HS
  7. SYMBICORT [Suspect]
     Indication: CHRONIC OBSTRUCTIVE PULMONARY DISEASE
     Dosage: 160/4.5 MCGS ONE PUFF BID
     Route: 055
     Dates: start: 20080101
  8. ESTRADIOL [Concomitant]
     Dosage: DAILY
  9. TRAMADOL HCL [Concomitant]
     Dosage: BID
  10. VITAMIN B-12 [Concomitant]
  11. EFFEXOR [Concomitant]
     Dosage: DAILY
  12. LASIX [Concomitant]
     Dosage: DAILY
  13. MORPHINE [Concomitant]
     Dosage: DAILY

REACTIONS (2)
  - DYSPNOEA [None]
  - DRUG DOSE OMISSION [None]
